FAERS Safety Report 6144470-X (Version None)
Quarter: 2009Q2

REPORT INFORMATION
  Report Type: 
  Country: None (occurrence: None)
  Receive Date: 20090406
  Receipt Date: 20090325
  Transmission Date: 20091009
  Serious: Yes (Other)
  Sender: FDA-Public Use
  Company Number: FR-PFIZER INC-2009188433

PATIENT

DRUGS (11)
  1. SALAZOPYRINE EN [Suspect]
     Indication: RHEUMATOID ARTHRITIS
     Dosage: UNK
     Route: 048
     Dates: start: 20080901, end: 20081101
  2. METHOTREXATE [Concomitant]
  3. FOLIC ACID [Concomitant]
  4. PROFENID [Concomitant]
  5. DI-ANTALVIC [Concomitant]
  6. PANTOPRAZOLE [Concomitant]
  7. MODOPAR [Concomitant]
  8. ASPIRIN/PRAVASTATIN SODIUM [Concomitant]
  9. APROVEL [Concomitant]
  10. NOVOLOG MIX 70/30 [Concomitant]
  11. EFFEXOR [Concomitant]

REACTIONS (1)
  - DEAFNESS [None]
